FAERS Safety Report 7902568-7 (Version None)
Quarter: 2011Q4

REPORT INFORMATION
  Report Type: 
  Country: None (occurrence: None)
  Receive Date: 20111108
  Receipt Date: 20111024
  Transmission Date: 20120403
  Serious: Yes (Other)
  Sender: FDA-Public Use
  Company Number: JP-WATSON-2011-17999

PATIENT
  Age: 39 Year
  Sex: Male

DRUGS (2)
  1. WHEAT GERM                         /00110501/ [Suspect]
     Indication: FOOD ALLERGY
  2. IBUPROFEN [Suspect]
     Indication: HEADACHE
     Dosage: ATE A MEAL CONTAINING BREAD AND TOOK IBUPROFEN FOR HEADACHE
     Route: 048

REACTIONS (4)
  - URTICARIA [None]
  - LOSS OF CONSCIOUSNESS [None]
  - DYSPNOEA [None]
  - ANAPHYLACTIC REACTION [None]
